FAERS Safety Report 4330205-X (Version None)
Quarter: 2004Q2

REPORT INFORMATION
  Report Type: 
  Country: None (occurrence: None)
  Receive Date: 20040401
  Receipt Date: 20040317
  Transmission Date: 20050107
  Serious: Yes (Other)
  Sender: FDA-Public Use
  Company Number: HQWYE964018MAR04

PATIENT
  Age: 58 Year
  Sex: Male

DRUGS (5)
  1. EFFEXOR XR [Suspect]
     Indication: DEPRESSION
     Dosage: ORAL
     Route: 048
  2. CIPRO (CIPROFLOXACINE HYDROCHLORIDE) [Suspect]
     Indication: CLOSTRIDIUM COLITIS
  3. DURICEF [Suspect]
     Indication: SURGERY
  4. FLAGYL [Suspect]
     Indication: CLOSTRIDIUM COLITIS
     Dosage: SEE IMAGE
  5. FLAGYL [Suspect]
     Indication: SURGERY
     Dosage: SEE IMAGE

REACTIONS (4)
  - AGITATION [None]
  - DELIRIUM [None]
  - DRUG INTERACTION [None]
  - SUICIDE ATTEMPT [None]
